FAERS Safety Report 6529374-2 (Version None)
Quarter: 2009Q4

REPORT INFORMATION
  Report Type: 
  Country: None (occurrence: None)
  Receive Date: 20091231
  Receipt Date: 20091217
  Transmission Date: 20100525
  Serious: Yes (Other)
  Sender: FDA-Public Use
  Company Number: CIP09003530

PATIENT
  Age: 54 Year
  Sex: Male

DRUGS (7)
  1. RISEDRONATE SODIUM [Suspect]
     Dosage: 2.5 MG, DAILY, ORAL
     Route: 048
     Dates: start: 20091020, end: 20091203
  2. LANSOPRAZOLE [Suspect]
     Indication: GASTRIC ULCER
     Dosage: 30 MG, UNK, ORAL
     Route: 048
     Dates: start: 20091020, end: 20091203
  3. SULFAMETHOXAZOLE AND TRIMETHOPRIM [Suspect]
     Indication: INTERSTITIAL LUNG DISEASE
     Dosage: 1 DF, UNK, ORAL
     Route: 048
     Dates: start: 20091020, end: 20091203
  4. NATEGLINIDE [Concomitant]
  5. LANTUS [Concomitant]
  6. LOXONIN /00890701/ (LOXOPROFEN) [Concomitant]
  7. PREDONINE /00016201/ (PREDNISOLONE) [Concomitant]

REACTIONS (2)
  - LEUKOPENIA [None]
  - PYREXIA [None]
